FAERS Safety Report 10014607 (Version 1)
Quarter: 2014Q1

REPORT INFORMATION
  Report Type: Spontaneous
  Country: IN (occurrence: IN)
  Receive Date: 20140317
  Receipt Date: 20140317
  Transmission Date: 20141002
  Serious: Yes (Other)
  Sender: FDA-Public Use
  Company Number: IN-DRREDDYS-USA/IND/14/0038931

PATIENT
  Age: 64 Year
  Sex: Male

DRUGS (5)
  1. CLOPIDOGREL [Suspect]
     Indication: CORONARY ARTERY DISEASE
     Route: 065
  2. ATENOLOL [Concomitant]
     Indication: CORONARY ARTERY DISEASE
     Route: 065
  3. ASPIRIN [Concomitant]
     Indication: CORONARY ARTERY DISEASE
     Route: 065
  4. DILTIAZEM [Concomitant]
     Indication: CORONARY ARTERY DISEASE
     Route: 065
  5. ATORVASTATIN [Concomitant]
     Indication: CORONARY ARTERY DISEASE
     Route: 065

REACTIONS (1)
  - Psoriasis [Recovered/Resolved]
